FAERS Safety Report 24447014 (Version 1)
Quarter: 2024Q4

REPORT INFORMATION
  Report Type: Report from Study
  Country: US (occurrence: US)
  Receive Date: 20241016
  Receipt Date: 20241016
  Transmission Date: 20250114
  Serious: Yes (Other)
  Sender: PFIZER
  Company Number: US-PFIZER INC-202400237813

PATIENT
  Age: 92 Year
  Sex: Male

DRUGS (2)
  1. VYNDAMAX [Suspect]
     Active Substance: TAFAMIDIS
     Dosage: TAKE ONE CAPSULE BY MOUTH EVERY DAY
     Route: 048
     Dates: start: 20240514
  2. VYNDAMAX [Suspect]
     Active Substance: TAFAMIDIS
     Dosage: 61 MG, DAILY
     Route: 048

REACTIONS (8)
  - Angina pectoris [Unknown]
  - Cardiac disorder [Unknown]
  - Micturition disorder [Unknown]
  - Renal disorder [Unknown]
  - Fatigue [Unknown]
  - Swelling [Unknown]
  - Heart rate irregular [Unknown]
  - Dizziness [Unknown]
